FAERS Safety Report 9888276 (Version 3)
Quarter: 2014Q2

REPORT INFORMATION
  Report Type: Spontaneous
  Country: US (occurrence: US)
  Receive Date: 20140211
  Receipt Date: 20140407
  Transmission Date: 20141212
  Serious: No
  Sender: FDA-Public Use
  Company Number: US-PFIZER INC-2014034745

PATIENT
  Sex: Female

DRUGS (1)
  1. PREMARIN [Suspect]
     Indication: CERVIX CARCINOMA
     Dosage: UNK
     Route: 067

REACTIONS (3)
  - Product quality issue [Unknown]
  - Vulvovaginal discomfort [Unknown]
  - Off label use [Unknown]
